FAERS Safety Report 13000871 (Version 1)
Quarter: 2016Q4

REPORT INFORMATION
  Report Type: Other
  Country: CA (occurrence: CA)
  Receive Date: 20161206
  Receipt Date: 20161206
  Transmission Date: 20170207
  Serious: Yes (Other)
  Sender: FDA-Public Use
  Company Number: CA-APOTEX-2016AP015062

PATIENT
  Age: 38 Year
  Sex: Female

DRUGS (1)
  1. APO-RISPERIDONE [Suspect]
     Active Substance: RISPERIDONE
     Indication: DELUSION
     Dosage: 3 MG, BID
     Route: 065

REACTIONS (1)
  - Obsessive-compulsive disorder [Recovering/Resolving]
